FAERS Safety Report 8821231 (Version 1)
Quarter: 2012Q4

REPORT INFORMATION
  Report Type: 
  Country: US (occurrence: US)
  Receive Date: 20121002
  Receipt Date: 20121002
  Transmission Date: 20130627
  Serious: No
  Sender: FDA-Public Use
  Company Number: US-BAYER-2012-096027

PATIENT
  Age: 80 Year
  Sex: Male

DRUGS (1)
  1. LEVITRA [Suspect]
     Indication: ERECTILE DYSFUNCTION
     Dosage: 20 mg, PRN
     Route: 048
     Dates: start: 20120817, end: 20120912

REACTIONS (2)
  - Headache [Recovered/Resolved]
  - Erectile dysfunction [None]
